FAERS Safety Report 4359369-9 (Version None)
Quarter: 2004Q2

REPORT INFORMATION
  Report Type: 
  Country: None (occurrence: None)
  Receive Date: 20040518
  Receipt Date: 20040507
  Transmission Date: 20050107
  Serious: Yes (Death)
  Sender: FDA-Public Use
  Company Number: US-JNJFOC-20040501663

PATIENT
  Sex: Male

DRUGS (10)
  1. INFLIXIMAB [Suspect]
     Route: 042
  2. INFLIXIMAB [Suspect]
     Indication: RHEUMATOID ARTHRITIS
     Route: 042
  3. METHADONE HCL [Concomitant]
     Dosage: DAILY
  4. ARAVA [Concomitant]
  5. METHOTREXATE [Concomitant]
  6. FOLIC ACID [Concomitant]
  7. SULFASALAZINE [Concomitant]
  8. DOXEPIN HCL [Concomitant]
  9. CLONAZEPAM [Concomitant]
  10. VIOXX [Concomitant]

REACTIONS (1)
  - DEATH [None]
